FAERS Safety Report 20954133 (Version 1)
Quarter: 2022Q2

REPORT INFORMATION
  Report Type: Spontaneous
  Country: CN (occurrence: None)
  Receive Date: 20220614
  Receipt Date: 20220614
  Transmission Date: 20220721
  Serious: Yes (Hospitalization)
  Sender: FDA-Public Use
  Company Number: CN-ROCHE-3110254

PATIENT
  Age: 59 Year
  Sex: Female
  Weight: 52 kg

DRUGS (3)
  1. HERCEPTIN [Suspect]
     Active Substance: TRASTUZUMAB
     Indication: Breast cancer
     Route: 041
     Dates: start: 20220508
  2. PERJETA [Suspect]
     Active Substance: PERTUZUMAB
     Indication: Breast cancer
     Route: 065
     Dates: start: 20220508
  3. DOCETAXEL [Suspect]
     Active Substance: DOCETAXEL
     Indication: Breast cancer
     Route: 041
     Dates: start: 20220508

REACTIONS (4)
  - Palpitations [Recovering/Resolving]
  - Myelosuppression [Recovering/Resolving]
  - Diarrhoea [Recovering/Resolving]
  - Oral discomfort [Recovering/Resolving]

NARRATIVE: CASE EVENT DATE: 20220513
